FAERS Safety Report 19849461 (Version 1)
Quarter: 2021Q3

REPORT INFORMATION
  Report Type: Spontaneous
  Country: US (occurrence: US)
  Receive Date: 20210917
  Receipt Date: 20210917
  Transmission Date: 20211014
  Serious: Yes (Other)
  Sender: FDA-Public Use
  Company Number: US-ASTRAZENECA-2021A730538

PATIENT

DRUGS (1)
  1. PRILOSEC OTC [Suspect]
     Active Substance: OMEPRAZOLE MAGNESIUM
     Dosage: UNK
     Route: 048

REACTIONS (7)
  - Renal failure [Unknown]
  - Rebound acid hypersecretion [Unknown]
  - Rebound effect [Unknown]
  - Drug dependence [Unknown]
  - Pain [Unknown]
  - Hyperchlorhydria [Unknown]
  - Chronic kidney disease [Unknown]
